FAERS Safety Report 5093015-4 (Version None)
Quarter: 2006Q3

REPORT INFORMATION
  Report Type: 
  Country: None (occurrence: None)
  Receive Date: 20060830
  Receipt Date: 20060822
  Transmission Date: 20061208
  Serious: Yes (Other)
  Sender: FDA-Public Use
  Company Number: US-BRISTOL-MYERS SQUIBB COMPANY-13485743

PATIENT

DRUGS (1)
  1. ORENCIA [Suspect]

REACTIONS (1)
  - PANCREATITIS [None]
